FAERS Safety Report 7099852-9 (Version None)
Quarter: 2010Q4

REPORT INFORMATION
  Report Type: 
  Country: None (occurrence: None)
  Receive Date: 20101112
  Receipt Date: 20101108
  Transmission Date: 20110411
  Serious: Yes (Death, Hospitalization)
  Sender: FDA-Public Use
  Company Number: PHEH2009US08111

PATIENT
  Sex: Female

DRUGS (4)
  1. GLEEVEC [Suspect]
     Indication: CERVIX CARCINOMA
     Dosage: 400 MG, BID
     Route: 048
     Dates: start: 20080501, end: 20090717
  2. SPRYCEL [Concomitant]
     Dosage: TWO 70 MG TABLETS EVERY MORNING
     Route: 048
  3. PREDNISONE [Concomitant]
  4. VINCRISTINE [Concomitant]

REACTIONS (5)
  - ACUTE LYMPHOCYTIC LEUKAEMIA RECURRENT [None]
  - DIARRHOEA [None]
  - PLATELET COUNT DECREASED [None]
  - WHITE BLOOD CELL COUNT DECREASED [None]
  - WHITE BLOOD CELL COUNT INCREASED [None]
